FAERS Safety Report 22000288 (Version 1)
Quarter: 2023Q1

REPORT INFORMATION
  Report Type: Spontaneous
  Country: FR (occurrence: FR)
  Receive Date: 20230216
  Receipt Date: 20230216
  Transmission Date: 20230417
  Serious: Yes (Other)
  Sender: FDA-Public Use
  Company Number: FR-002147023-NVSC2023FR033068

PATIENT
  Sex: Male

DRUGS (1)
  1. GILENYA [Suspect]
     Active Substance: FINGOLIMOD HYDROCHLORIDE
     Indication: Lymphopenia
     Dosage: UNK UNK, TIW (3 TIMES A WEEK)
     Route: 048
     Dates: start: 2017, end: 20220916

REACTIONS (2)
  - Lymphopenia [Unknown]
  - Product use in unapproved indication [Unknown]
